FAERS Safety Report 6518447-6 (Version None)
Quarter: 2009Q4

REPORT INFORMATION
  Report Type: 
  Country: None (occurrence: None)
  Receive Date: 20091225
  Receipt Date: 20091215
  Transmission Date: 20100525
  Serious: No
  Sender: FDA-Public Use
  Company Number: US-BAYER-200942852NA

PATIENT
  Age: 23 Year
  Sex: Female

DRUGS (1)
  1. MIRENA [Suspect]
     Indication: CONTRACEPTION
     Dosage: CONTINUOS
     Route: 015
     Dates: start: 20090508

REACTIONS (2)
  - DEVICE EXPULSION [None]
  - PREGNANCY WITH CONTRACEPTIVE DEVICE [None]
